FAERS Safety Report 17779489 (Version 2)
Quarter: 2020Q2

REPORT INFORMATION
  Report Type: Spontaneous
  Country: NL (occurrence: NL)
  Receive Date: 20200514
  Receipt Date: 20200603
  Transmission Date: 20200714
  Serious: Yes (Other)
  Sender: FDA-Public Use
  Company Number: NL-ADVANZ PHARMA-202004005018

PATIENT

DRUGS (4)
  1. ZINC OROTATE [Concomitant]
     Active Substance: ZINC OROTATE
     Indication: COVID-19
     Dosage: UNK
  2. HYDROXYCHLOROQUINE [Suspect]
     Active Substance: HYDROXYCHLOROQUINE
     Indication: CORONAVIRUS INFECTION
     Dosage: 200 MG, TID, FILM-COATED TABLET
     Route: 065
  3. HYDROXYCHLOROQUINE [Suspect]
     Active Substance: HYDROXYCHLOROQUINE
     Indication: PRODUCT USE IN UNAPPROVED INDICATION
  4. AZITHROMYCINE [Concomitant]
     Active Substance: AZITHROMYCIN
     Indication: COVID-19
     Dosage: UNK

REACTIONS (2)
  - Superinfection bacterial [Unknown]
  - Off label use [Unknown]
